FAERS Safety Report 5878888-7 (Version None)
Quarter: 2008Q3

REPORT INFORMATION
  Report Type: 
  Country: None (occurrence: None)
  Receive Date: 20080912
  Receipt Date: 20080904
  Transmission Date: 20090109
  Serious: Yes (Other)
  Sender: FDA-Public Use
  Company Number: US-BAYER-200826654NA

PATIENT
  Age: 39 Year
  Sex: Female
  Weight: 62 kg

DRUGS (1)
  1. MIRENA [Suspect]
     Indication: CONTRACEPTION
     Route: 015
     Dates: start: 20060925, end: 20080529

REACTIONS (4)
  - CLAVICLE FRACTURE [None]
  - IUCD COMPLICATION [None]
  - SYNCOPE [None]
  - SYNCOPE VASOVAGAL [None]
